FAERS Safety Report 13898971 (Version 2)
Quarter: 2021Q3

REPORT INFORMATION
  Report Type: Spontaneous
  Country: US (occurrence: US)
  Receive Date: 20170823
  Receipt Date: 20210817
  Transmission Date: 20211014
  Serious: No
  Sender: FDA-Public Use
  Company Number: US-JAZZ-2017-US-007204

PATIENT
  Age: 52 Year
  Sex: Male

DRUGS (2)
  1. XYREM [Suspect]
     Active Substance: SODIUM OXYBATE
     Indication: NARCOLEPSY
     Dosage: 2.25 GRAM, BID
     Route: 048
     Dates: start: 20170528
  2. XYREM [Suspect]
     Active Substance: SODIUM OXYBATE
     Indication: CATAPLEXY
     Dosage: 4.5 GRAM, BID
     Route: 048

REACTIONS (5)
  - Feeling drunk [Recovered/Resolved]
  - Wrong technique in product usage process [Unknown]
  - Dizziness [Recovered/Resolved]
  - Hunger [Not Recovered/Not Resolved]
  - Nervousness [Recovering/Resolving]

NARRATIVE: CASE EVENT DATE: 2017
